FAERS Safety Report 6644141-7 (Version None)
Quarter: 2010Q1

REPORT INFORMATION
  Report Type: 
  Country: None (occurrence: None)
  Receive Date: 20100322
  Receipt Date: 20100316
  Transmission Date: 20100710
  Serious: Yes (Death, Hospitalization)
  Sender: FDA-Public Use
  Company Number: PHHY2010BR16180

PATIENT
  Sex: Male

DRUGS (4)
  1. FORASEQ [Suspect]
     Indication: DYSPNOEA
     Dosage: INHALATION ONCE A DAY
  2. SPIRIVA [Concomitant]
     Indication: DYSPNOEA
  3. GLIMEPIRIDE [Concomitant]
     Indication: DIABETES MELLITUS
  4. SIMVASTATIN [Concomitant]
     Indication: BLOOD CHOLESTEROL

REACTIONS (3)
  - DEATH [None]
  - DYSPNOEA [None]
  - FATIGUE [None]
